FAERS Safety Report 9412634 (Version 1)
Quarter: 2013Q3

REPORT INFORMATION
  Report Type: Spontaneous
  Country: EC (occurrence: EC)
  Receive Date: 20130722
  Receipt Date: 20130722
  Transmission Date: 20140515
  Serious: Yes (Other)
  Sender: FDA-Public Use
  Company Number: EC-PFIZER INC-2013212003

PATIENT
  Age: 73 Year
  Sex: Female

DRUGS (4)
  1. LIPITOR [Suspect]
     Indication: HYPERLIPIDAEMIA
     Dosage: 80 MG, ONCE DAILY
     Route: 048
     Dates: start: 20121130, end: 20130215
  2. OMEPRAZOL [Concomitant]
  3. ANTIPLAC [Concomitant]
  4. VALCOTE [Concomitant]

REACTIONS (1)
  - Convulsion [Unknown]
